FAERS Safety Report 10131193 (Version 2)
Quarter: 2014Q2

REPORT INFORMATION
  Report Type: Spontaneous
  Country: US (occurrence: US)
  Receive Date: 20140428
  Receipt Date: 20140428
  Transmission Date: 20141212
  Serious: Yes (Hospitalization, Other)
  Sender: FDA-Public Use
  Company Number: US-JNJFOC-20140411776

PATIENT
  Age: 80 Year
  Sex: Female
  Weight: 68.1 kg

DRUGS (8)
  1. IMBRUVICA [Suspect]
     Indication: CHRONIC LYMPHOCYTIC LEUKAEMIA
     Route: 048
     Dates: start: 20140307, end: 20140324
  2. NAPROXEN [Concomitant]
  3. PROBIOTIC [Concomitant]
     Route: 048
  4. VITAMIN B12 [Concomitant]
     Route: 048
  5. CALCIUM CARBONATE [Concomitant]
     Route: 048
  6. MULTIVITAMINS [Concomitant]
     Route: 048
  7. CRANBERRY TABS [Concomitant]
  8. ASCORBIC ACID [Concomitant]
     Route: 048

REACTIONS (7)
  - Gastrointestinal haemorrhage [Recovered/Resolved]
  - Thrombocytopenia [Recovering/Resolving]
  - Haematuria [Recovered/Resolved]
  - Anaemia [Recovering/Resolving]
  - Hypokalaemia [Unknown]
  - Mouth ulceration [Recovered/Resolved]
  - Hypophosphataemia [Unknown]
